FAERS Safety Report 8030454-3 (Version None)
Quarter: 2012Q1

REPORT INFORMATION
  Report Type: 
  Country: None (occurrence: None)
  Receive Date: 20120109
  Receipt Date: 20120106
  Transmission Date: 20120608
  Serious: Yes (Hospitalization, Other)
  Sender: FDA-Public Use
  Company Number: PHHY2010NL57341

PATIENT
  Sex: Male

DRUGS (14)
  1. PREDNISONE [Concomitant]
     Dosage: 5 MG, BID
  2. ZOMETA [Suspect]
     Indication: PROSTATE CANCER METASTATIC
     Dosage: 4 MG/5ML, INTRAVENOUS INFUSION FOR 20
     Route: 042
     Dates: start: 20100315
  3. ZOMETA [Suspect]
     Dosage: 4 MG/5ML, ONCE PER 8 WEEKS
     Route: 042
     Dates: start: 20110909
  4. ZOMETA [Suspect]
     Dosage: 4 MG/5ML
     Route: 042
     Dates: start: 20110104
  5. ZOMETA [Suspect]
     Dosage: 4 MG/5ML, ONCE PER 8 WEEKS
     Route: 042
     Dates: start: 20110201
  6. ARANESP [Concomitant]
  7. ANTIBIOTICS [Concomitant]
     Route: 041
  8. PREDNISONE [Concomitant]
     Dosage: 5 MG, QD
  9. ZOMETA [Suspect]
     Dosage: 4 MG/5ML
     Route: 042
     Dates: start: 20101101
  10. ZOMETA [Suspect]
     Dosage: 4 MG/5ML
     Route: 042
     Dates: start: 20100705
  11. ZOMETA [Suspect]
     Dosage: 4 MG/5ML
     Route: 042
     Dates: start: 20100803
  12. ZOMETA [Suspect]
     Dosage: 4 MG/5ML
     Route: 042
     Dates: start: 20101129
  13. ZOMETA [Suspect]
     Dosage: 4 MG/5ML, ONCE PER 8 WEEKS
     Route: 042
     Dates: start: 20110720
  14. LEUPROLIDE ACETATE [Concomitant]
     Dosage: 30 MG, 1X PER 6 MONTHS

REACTIONS (10)
  - NEOPLASM PROGRESSION [None]
  - URINARY TRACT DISORDER [None]
  - RENAL DISORDER [None]
  - DEVICE OCCLUSION [None]
  - DYSURIA [None]
  - FLANK PAIN [None]
  - NEOPLASM MALIGNANT [None]
  - PROSTATIC SPECIFIC ANTIGEN INCREASED [None]
  - METASTASES TO BONE [None]
  - NECROTISING FASCIITIS [None]
